FAERS Safety Report 7094111-2 (Version None)
Quarter: 2010Q4

REPORT INFORMATION
  Report Type: 
  Country: None (occurrence: None)
  Receive Date: 20101109
  Receipt Date: 20101109
  Transmission Date: 20110411
  Serious: Yes (Other)
  Sender: FDA-Public Use
  Company Number: None

PATIENT
  Age: 82 Year
  Sex: Female
  Weight: 77.1115 kg

DRUGS (1)
  1. SIMVASTATIN [Suspect]
     Indication: BLOOD CHOLESTEROL INCREASED
     Dosage: ONE 10 MG TABLET ONCE DAILY 047
     Route: 048
     Dates: start: 20090501, end: 20100212

REACTIONS (11)
  - ASTHENIA [None]
  - CONFUSIONAL STATE [None]
  - FALL [None]
  - GAIT DISTURBANCE [None]
  - HYPERSOMNIA [None]
  - HYPOPHAGIA [None]
  - INCOHERENT [None]
  - LETHARGY [None]
  - MEMORY IMPAIRMENT [None]
  - MUSCLE ATROPHY [None]
  - RECTAL DISCHARGE [None]
